FAERS Safety Report 8927896 (Version 4)
Quarter: 2013Q2

REPORT INFORMATION
  Report Type: Spontaneous
  Country: JP (occurrence: JP)
  Receive Date: 20121127
  Receipt Date: 20130515
  Transmission Date: 20140414
  Serious: Yes (Hospitalization, Congenital Anomaly, Other)
  Sender: FDA-Public Use
  Company Number: JP-MPIJNJ-2012-08295

PATIENT
  Sex: 0

DRUGS (12)
  1. VELCADE [Suspect]
     Indication: PLASMA CELL MYELOMA
     Dosage: 1.7 MG, UNK
     Route: 042
     Dates: start: 20121024, end: 20121103
  2. MELPHALAN [Concomitant]
     Indication: PLASMA CELL MYELOMA
     Dosage: 12 MG, UNK
     Route: 048
     Dates: start: 20121024, end: 20121027
  3. PREDNISOLONE [Concomitant]
     Indication: PLASMA CELL MYELOMA
     Dosage: 80 MG, UNK
     Route: 048
     Dates: start: 20121024, end: 20121027
  4. DEXAMETHASONE [Concomitant]
     Dosage: 40 MG, UNK
  5. GASTER D [Concomitant]
     Indication: GASTRIC ULCER
     Dosage: 40 MG, UNK
     Route: 048
     Dates: start: 20121022
  6. ZYLORIC                            /00003301/ [Concomitant]
     Indication: HYPERURICAEMIA
     Dosage: 100 MG, UNK
     Route: 048
     Dates: start: 20121022, end: 20121103
  7. DIFLUCAN [Concomitant]
     Indication: GASTROINTESTINAL FUNGAL INFECTION
     Dosage: 100 MG, UNK
     Route: 048
     Dates: start: 20121022
  8. LOXONIN                            /00890701/ [Concomitant]
     Indication: BACK PAIN
     Dosage: 120 MG, UNK
     Route: 048
     Dates: start: 20121022, end: 20121103
  9. MAGMITT [Concomitant]
     Indication: CONSTIPATION
     Dosage: 990 MG, UNK
     Route: 048
     Dates: start: 20121022, end: 20121103
  10. ALOSENN                            /00476901/ [Concomitant]
     Indication: CONSTIPATION
     Dosage: UNK
     Route: 048
     Dates: start: 20121022, end: 20121103
  11. OXYCONTIN [Concomitant]
     Indication: BACK PAIN
     Dosage: 10 MG, UNK
     Route: 048
     Dates: start: 20121022, end: 20121103
  12. BAKTAR [Concomitant]
     Dosage: UNK
     Route: 048
     Dates: start: 20121022, end: 20121103

REACTIONS (5)
  - Shock [Recovered/Resolved]
  - Pleural effusion [Recovered/Resolved]
  - Rash [Recovered/Resolved]
  - Blood pressure decreased [Recovered/Resolved]
  - Renal impairment [Recovered/Resolved]
